FAERS Safety Report 9585847 (Version 1)
Quarter: 2013Q4

REPORT INFORMATION
  Report Type: Spontaneous
  Country: US (occurrence: None)
  Receive Date: 20131002
  Receipt Date: 20131002
  Transmission Date: 20140711
  Serious: No
  Sender: FDA-Public Use
  Company Number: None

PATIENT
  Age: 38 Year
  Sex: Female

DRUGS (2)
  1. SYEDA [Suspect]
     Indication: HORMONE THERAPY
     Route: 048
     Dates: start: 20130520, end: 20130916
  2. SYEDA [Suspect]
     Indication: ACNE
     Route: 048
     Dates: start: 20130520, end: 20130916

REACTIONS (3)
  - Abdominal distension [None]
  - Muscle spasms [None]
  - Abdominal pain lower [None]
